FAERS Safety Report 7773706-4 (Version None)
Quarter: 2011Q3

REPORT INFORMATION
  Report Type: 
  Country: None (occurrence: None)
  Receive Date: 20110920
  Receipt Date: 20110909
  Transmission Date: 20111222
  Serious: Yes (Other)
  Sender: FDA-Public Use
  Company Number: 2011-3783

PATIENT
  Age: 57 Year
  Sex: Female
  Weight: 58 kg

DRUGS (5)
  1. DYSPORT (BOTULINUM TOXIN TYPE A) (BOTULINUM TOXIN TYPE A) [Suspect]
     Indication: SKIN WRINKLING
     Dosage: SINGLE CYCLE
     Dates: start: 20091201, end: 20091201
  2. DYSPORT (BOTULINUM TOXIN TYPE A) (BOTULINUM TOXIN TYPE A) [Suspect]
     Indication: OFF LABEL USE
     Dosage: SINGLE CYCLE
     Dates: start: 20091201, end: 20091201
  3. UNSPECIFIED NUMBING MEDICATION(ANAESTHETICS FOR TOPICAL USE) ABOTULINU [Suspect]
     Indication: PREMEDICATION
     Dates: start: 20091201, end: 20091201
  4. VICODIN [Concomitant]
  5. ESTRADIOL [Concomitant]

REACTIONS (10)
  - LYMPHOEDEMA [None]
  - INJECTION SITE SWELLING [None]
  - VISUAL ACUITY REDUCED [None]
  - EMPHYSEMA [None]
  - AMNESIA [None]
  - PNEUMONIA [None]
  - NEOPLASM MALIGNANT [None]
  - EYE INFECTION [None]
  - LACRIMATION DECREASED [None]
  - HAEMORRHAGE [None]
